FAERS Safety Report 10559671 (Version 3)
Quarter: 2014Q4

REPORT INFORMATION
  Report Type: Spontaneous
  Country: CH (occurrence: None)
  Receive Date: 20141030
  Receipt Date: 20141218
  Transmission Date: 20150529
  Serious: Yes (Hospitalization)
  Sender: FDA-Public Use
  Company Number: 20140682

PATIENT
  Sex: Female

DRUGS (1)
  1. FERINJECT [Suspect]
     Active Substance: FERRIC CARBOXYMALTOSE
     Indication: PRODUCT USED FOR UNKNOWN INDICATION
     Dates: start: 20140916

REACTIONS (4)
  - Swollen tongue [None]
  - Pharyngeal oedema [None]
  - Tachycardia [None]
  - Anaphylactoid reaction [None]

NARRATIVE: CASE EVENT DATE: 20140916
